FAERS Safety Report 8765666 (Version 1)
Quarter: 2012Q4

REPORT INFORMATION
  Report Type: 
  Country: BR (occurrence: BR)
  Receive Date: 20120903
  Receipt Date: 20120903
  Transmission Date: 20130627
  Serious: Yes (Other)
  Sender: FDA-Public Use
  Company Number: PHHY2012BR076065

PATIENT
  Sex: Female

DRUGS (2)
  1. VOLTAREN [Suspect]
     Dosage: UNK UKN, UNK
  2. VOLTAREN [Concomitant]
     Dosage: UNK UKN, UNK

REACTIONS (2)
  - Expired drug administered [Unknown]
  - Pain [Unknown]
